FAERS Safety Report 6622145-8 (Version None)
Quarter: 2010Q1

REPORT INFORMATION
  Report Type: 
  Country: None (occurrence: None)
  Receive Date: 20100304
  Receipt Date: 20100225
  Transmission Date: 20100710
  Serious: Yes (Hospitalization)
  Sender: FDA-Public Use
  Company Number: 2010SP011971

PATIENT
  Sex: Female

DRUGS (2)
  1. INTERFERON [Suspect]
     Indication: HEPATITIS C
     Dates: start: 20090401
  2. RIBAVIRIN [Suspect]
     Indication: HEPATITIS C
     Dates: start: 20090401

REACTIONS (2)
  - INFECTION [None]
  - WRIST FRACTURE [None]
